FAERS Safety Report 14165357 (Version 3)
Quarter: 2018Q1

REPORT INFORMATION
  Report Type: Spontaneous
  Country: IT (occurrence: IT)
  Receive Date: 20171107
  Receipt Date: 20180129
  Transmission Date: 20180508
  Serious: Yes (Hospitalization)
  Sender: FDA-Public Use
  Company Number: IT-GLAXOSMITHKLINE-IT2017GSK168849

PATIENT
  Age: 7 Month
  Sex: Male
  Weight: 8 kg

DRUGS (1)
  1. RANITIDINE. [Suspect]
     Active Substance: RANITIDINE
     Indication: GASTROOESOPHAGEAL REFLUX DISEASE
     Dosage: 12 ML, SINGLE
     Route: 048
     Dates: start: 20170617, end: 20170617

REACTIONS (6)
  - Somnolence [Recovered/Resolved]
  - Transaminases increased [Recovered/Resolved]
  - Sopor [Recovered/Resolved]
  - Incorrect dose administered [Unknown]
  - Hypoglycaemia [Recovered/Resolved]
  - Hypertransaminasaemia [Recovered/Resolved]

NARRATIVE: CASE EVENT DATE: 20170617
